FAERS Safety Report 7360225-2 (Version None)
Quarter: 2011Q1

REPORT INFORMATION
  Report Type: 
  Country: None (occurrence: None)
  Receive Date: 20110307
  Receipt Date: 20110223
  Transmission Date: 20110831
  Serious: Yes (Life-Threatening, Hospitalization, Other)
  Sender: FDA-Public Use
  Company Number: 2010BI035026

PATIENT
  Age: 57 Year
  Sex: Female
  Weight: 63 kg

DRUGS (19)
  1. GARENOXACIN [Concomitant]
  2. POLARAMINE [Concomitant]
  3. LEBENIN [Concomitant]
  4. CYCLOPHOSPBAMIDE [Concomitant]
  5. RITUXIMAB [Concomitant]
  6. FERROUS CITRATE [Concomitant]
  7. FLUDEOXYGLUCOSE [Concomitant]
  8. MAGNESIUM OXIDE [Concomitant]
  9. GENINAX [Concomitant]
  10. PANCREAZE [Concomitant]
  11. DOXORUBICIN HCL [Concomitant]
  12. PREDNISOLONE [Concomitant]
  13. LOXONIN [Concomitant]
  14. GASMOTIN [Concomitant]
  15. ZEVALIN [Suspect]
     Indication: FOLLICLE CENTRE LYMPHOMA, FOLLICULAR GRADE I, II, III STAGE III
     Dosage: 935 MBQ; IX; IV
     Route: 042
     Dates: start: 20100309, end: 20100316
  16. MYSLEE [Concomitant]
  17. GASTER [Concomitant]
  18. GASLON N_ OD [Concomitant]
  19. VINCRISTINE SULFATE [Concomitant]

REACTIONS (7)
  - ENTEROCOLITIS [None]
  - WHITE BLOOD CELL COUNT DECREASED [None]
  - NEUTROPHIL COUNT DECREASED [None]
  - ILEUS [None]
  - HAEMOGLOBIN DECREASED [None]
  - PLATELET COUNT DECREASED [None]
  - BLOOD ALBUMIN DECREASED [None]
